FAERS Safety Report 24914099 (Version 4)
Quarter: 2025Q4

REPORT INFORMATION
  Report Type: Report from Study
  Country: US (occurrence: US)
  Receive Date: 20250202
  Receipt Date: 20251104
  Transmission Date: 20260117
  Serious: Yes (Other)
  Sender: ABBVIE
  Company Number: US-ABBVIE-6108372

PATIENT
  Age: 59 Year
  Sex: Female

DRUGS (3)
  1. RINVOQ [Suspect]
     Active Substance: UPADACITINIB
     Indication: Rheumatoid arthritis
     Route: 048
     Dates: start: 20240301
  2. RINVOQ [Suspect]
     Active Substance: UPADACITINIB
     Indication: Rheumatoid arthritis
     Dosage: LAST ADMIN-2024
     Route: 048
     Dates: start: 2024
  3. RINVOQ [Suspect]
     Active Substance: UPADACITINIB
     Indication: Rheumatoid arthritis
     Route: 048
     Dates: start: 20250124

REACTIONS (9)
  - Foot deformity [Recovering/Resolving]
  - Unevaluable event [Not Recovered/Not Resolved]
  - Knee arthroplasty [Unknown]
  - Spinal operation [Recovering/Resolving]
  - Neck surgery [Unknown]
  - Anaemia [Not Recovered/Not Resolved]
  - Dyslexia [Unknown]
  - Asthenia [Unknown]
  - Foot operation [Recovering/Resolving]

NARRATIVE: CASE EVENT DATE: 20240101
